FAERS Safety Report 8357311-7 (Version None)
Quarter: 2012Q2

REPORT INFORMATION
  Report Type: 
  Country: None (occurrence: None)
  Receive Date: 20120514
  Receipt Date: 20120504
  Transmission Date: 20120825
  Serious: Yes (Other)
  Sender: FDA-Public Use
  Company Number: DE-ROCHE-1066684

PATIENT
  Sex: Female

DRUGS (2)
  1. CYTARABINE [Interacting]
     Indication: PRODUCT USED FOR UNKNOWN INDICATION
  2. VESANOID [Suspect]
     Indication: PRODUCT USED FOR UNKNOWN INDICATION

REACTIONS (2)
  - PULMONARY FIBROSIS [None]
  - DRUG INTERACTION [None]
